FAERS Safety Report 23626080 (Version 2)
Quarter: 2024Q1

REPORT INFORMATION
  Report Type: Other
  Country: US (occurrence: None)
  Receive Date: 20240313
  Receipt Date: 20240315
  Transmission Date: 20240409
  Serious: Yes (Hospitalization, Other)
  Sender: FDA-Public Use
  Company Number: US-ROCHE-3521725

PATIENT
  Age: 36 Year
  Sex: Female
  Weight: 110.32 kg

DRUGS (22)
  1. LONSURF [Suspect]
     Active Substance: TIPIRACIL HYDROCHLORIDE\TRIFLURIDINE
     Indication: Colon cancer
     Route: 048
     Dates: start: 20231009
  2. LONSURF [Suspect]
     Active Substance: TIPIRACIL HYDROCHLORIDE\TRIFLURIDINE
     Indication: Colorectal cancer stage IV
  3. AVASTIN [Suspect]
     Active Substance: BEVACIZUMAB
     Indication: Product used for unknown indication
     Route: 065
     Dates: start: 20230321
  4. FLUOROURACIL\IRINOTECAN\LEUCOVORIN\OXALIPLATIN [Concomitant]
     Active Substance: FLUOROURACIL\IRINOTECAN\LEUCOVORIN\OXALIPLATIN
     Dates: start: 20220222
  5. FLUOROURACIL\IRINOTECAN\LEUCOVORIN [Concomitant]
     Active Substance: FLUOROURACIL\IRINOTECAN\LEUCOVORIN
     Dates: start: 20220726
  6. PANITUMUMAB [Concomitant]
     Active Substance: PANITUMUMAB
     Dates: start: 20220726
  7. FLUOROURACIL\LEUCOVORIN CALCIUM\OXALIPLATIN [Concomitant]
     Active Substance: FLUOROURACIL\LEUCOVORIN CALCIUM\OXALIPLATIN
     Dates: start: 20230321
  8. ACYCLOVIR [Concomitant]
     Active Substance: ACYCLOVIR
  9. CLINDAMYCIN [Concomitant]
     Active Substance: CLINDAMYCIN
     Route: 061
  10. ATROPINE\DIPHENOXYLATE [Concomitant]
     Active Substance: ATROPINE\DIPHENOXYLATE
     Dosage: 2.5 MG-0.025 MG
  11. DULOXETINE [Concomitant]
     Active Substance: DULOXETINE
  12. ESTRADIOL [Concomitant]
     Active Substance: ESTRADIOL
  13. HYDROCORTISONE [Concomitant]
     Active Substance: HYDROCORTISONE
     Route: 061
  14. IBUPROFEN [Concomitant]
     Active Substance: IBUPROFEN
  15. IMODIUM A-D [Concomitant]
     Active Substance: LOPERAMIDE HYDROCHLORIDE
  16. LIDOCAINE\PRILOCAINE [Concomitant]
     Active Substance: LIDOCAINE\PRILOCAINE
     Dosage: 2.5 %-2.5 %
     Route: 061
  17. MIRALAX [Concomitant]
     Active Substance: POLYETHYLENE GLYCOL 3350
     Route: 048
  18. NYSTATIN [Concomitant]
     Active Substance: NYSTATIN
     Route: 061
  19. ONDANSETRON [Concomitant]
     Active Substance: ONDANSETRON
  20. PROPRANOLOL [Concomitant]
     Active Substance: PROPRANOLOL HYDROCHLORIDE
  21. UREA [Concomitant]
     Active Substance: UREA
     Route: 061
  22. WELLBUTRIN XL [Concomitant]
     Active Substance: BUPROPION HYDROCHLORIDE
     Route: 047

REACTIONS (16)
  - Anaemia [Recovered/Resolved]
  - Gastrointestinal haemorrhage [Recovered/Resolved]
  - Jaundice cholestatic [Not Recovered/Not Resolved]
  - Neuropathy peripheral [Unknown]
  - Oedema peripheral [Unknown]
  - Hypomagnesaemia [Unknown]
  - Fatigue [Unknown]
  - Incision site pain [Unknown]
  - Decreased appetite [Unknown]
  - Catheter site pain [Not Recovered/Not Resolved]
  - Pancytopenia [Unknown]
  - Hot flush [Unknown]
  - Mood swings [Unknown]
  - Nausea [Unknown]
  - Vomiting [Unknown]
  - Varices oesophageal [Not Recovered/Not Resolved]

NARRATIVE: CASE EVENT DATE: 20231121
